FAERS Safety Report 9375744 (Version 1)
Quarter: 2013Q2

REPORT INFORMATION
  Report Type: Spontaneous
  Country: ES (occurrence: ES)
  Receive Date: 20130628
  Receipt Date: 20130628
  Transmission Date: 20140414
  Serious: Yes (Life-Threatening, Hospitalization)
  Sender: FDA-Public Use
  Company Number: PHHY2013ES066715

PATIENT
  Age: 59 Year
  Sex: Female

DRUGS (15)
  1. SINTROM [Suspect]
     Indication: PULMONARY EMBOLISM
     Dosage: UNK UKN, QD
     Route: 048
     Dates: start: 2008, end: 20130109
  2. IBUPROFEN [Interacting]
     Indication: PAIN
     Dosage: 600 MG, DAILY
     Route: 048
     Dates: end: 20130109
  3. DACORTIN [Interacting]
     Indication: ANTIPHOSPHOLIPID SYNDROME
     Dosage: 30 MG, QD
     Route: 048
     Dates: start: 2008, end: 20130109
  4. OMEPRAZOLE [Concomitant]
     Dosage: UNK UKN, UNK
  5. SEPTRIN FORTE [Concomitant]
     Dosage: UNK UKN, Q48H
  6. VALACICLOVIR [Concomitant]
     Dosage: 500 MG, QD
  7. FUROSEMIDE [Concomitant]
     Dosage: UNK UKN, UNK
  8. CARVEDILOL [Concomitant]
     Dosage: UNK UKN, UNK
  9. FOLIC ACID [Concomitant]
     Dosage: UNK UKN, UNK
  10. ALPRAZOLAM [Concomitant]
     Dosage: UNK UKN, UNK
  11. LORAZEPAN [Concomitant]
     Dosage: UNK UKN, UNK
  12. CITALOPRAM [Concomitant]
     Dosage: UNK UKN, UNK
  13. QUETIAPINA [Concomitant]
     Dosage: 25 MG, DAILY
  14. NOLOTIL                                 /SPA/ [Concomitant]
     Dosage: UNK UKN, UNK
  15. FENTANYL [Concomitant]
     Dosage: UNK UKN, UNK

REACTIONS (1)
  - Abdominal wall haematoma [Recovered/Resolved]
